FAERS Safety Report 7299388-6 (Version None)
Quarter: 2011Q1

REPORT INFORMATION
  Report Type: 
  Country: None (occurrence: None)
  Receive Date: 20110217
  Receipt Date: 20110214
  Transmission Date: 20110831
  Serious: Yes (Other)
  Sender: FDA-Public Use
  Company Number: B0698742A

PATIENT
  Age: 66 Year
  Sex: Male

DRUGS (3)
  1. ZEFIX 100 [Suspect]
     Dosage: 100MG PER DAY
     Route: 048
     Dates: start: 20110202, end: 20110206
  2. MORPHINE [Suspect]
     Indication: PAIN MANAGEMENT
     Dosage: 30MG PER DAY
     Route: 048
     Dates: start: 20110202
  3. LYRICA [Concomitant]
     Indication: PAIN MANAGEMENT
     Dosage: 150MG PER DAY
     Route: 048
     Dates: start: 20110202

REACTIONS (2)
  - HEADACHE [None]
  - LOSS OF CONSCIOUSNESS [None]
